FAERS Safety Report 8258525-7 (Version None)
Quarter: 2012Q2

REPORT INFORMATION
  Report Type: 
  Country: None (occurrence: None)
  Receive Date: 20120404
  Receipt Date: 20120329
  Transmission Date: 20120825
  Serious: No
  Sender: FDA-Public Use
  Company Number: JP-GE HEALTHCARE MEDICAL DIAGNOSTICS-MSTR-NO-1106S-0170

PATIENT
  Age: 75 Year
  Sex: Female

DRUGS (2)
  1. METASTRON [Suspect]
     Route: 042
     Dates: start: 20110210, end: 20110210
  2. METASTRON [Suspect]
     Indication: METASTATIC PAIN
     Route: 042
     Dates: start: 20101021, end: 20101021

REACTIONS (1)
  - NO ADVERSE EVENT [None]
